FAERS Safety Report 24232576 (Version 4)
Quarter: 2024Q4

REPORT INFORMATION
  Report Type: Report from Study
  Country: US (occurrence: US)
  Receive Date: 20240821
  Receipt Date: 20241031
  Transmission Date: 20250115
  Serious: Yes (Other)
  Sender: ACADIA PHARMACEUTICALS
  Company Number: US-ACADIA PHARMACEUTICALS INC.-ACA-2024-PIM-004127

PATIENT
  Sex: Female

DRUGS (2)
  1. NUPLAZID [Suspect]
     Active Substance: PIMAVANSERIN TARTRATE
     Indication: Parkinson^s disease psychosis
     Dosage: UNKNOWN
     Route: 065
  2. NUPLAZID [Suspect]
     Active Substance: PIMAVANSERIN TARTRATE
     Indication: Parkinson^s disease psychosis
     Dosage: 34 MILLIGRAM, QD
     Route: 048

REACTIONS (17)
  - Deafness unilateral [Not Recovered/Not Resolved]
  - Anxiety [Not Recovered/Not Resolved]
  - Nightmare [Unknown]
  - Treatment noncompliance [Unknown]
  - Cholelithiasis [Not Recovered/Not Resolved]
  - Colectomy [Not Recovered/Not Resolved]
  - Arthritis [Not Recovered/Not Resolved]
  - Spinal rod insertion [Not Recovered/Not Resolved]
  - Shoulder operation [Not Recovered/Not Resolved]
  - Knee arthroplasty [Not Recovered/Not Resolved]
  - Limb injury [Not Recovered/Not Resolved]
  - Dementia with Lewy bodies [Not Recovered/Not Resolved]
  - Condition aggravated [Not Recovered/Not Resolved]
  - Hallucination [Unknown]
  - Hallucination, auditory [Not Recovered/Not Resolved]
  - Agitation [Not Recovered/Not Resolved]
  - Gait disturbance [Not Recovered/Not Resolved]
